FAERS Safety Report 15046322 (Version 2)
Quarter: 2018Q2

REPORT INFORMATION
  Report Type: Report from Study
  Country: US (occurrence: US)
  Receive Date: 20180621
  Receipt Date: 20180628
  Transmission Date: 20180711
  Serious: Yes (Other)
  Sender: FDA-Public Use
  Company Number: US-GILEAD-2018-0345915

PATIENT
  Sex: Male

DRUGS (1)
  1. SOFOSBUVIR W/VELPATASVIR [Suspect]
     Active Substance: SOFOSBUVIR\VELPATASVIR
     Indication: CHRONIC HEPATITIS C
     Dosage: 1 DF, QD
     Route: 048
     Dates: start: 20171104, end: 20180126

REACTIONS (4)
  - Hepatitis B reactivation [Not Recovered/Not Resolved]
  - Hepatitis C [Not Recovered/Not Resolved]
  - Internal haemorrhage [Unknown]
  - Drug ineffective [Unknown]
